FAERS Safety Report 9115596 (Version 4)
Quarter: 2014Q4

REPORT INFORMATION
  Report Type: Spontaneous
  Country: US (occurrence: None)
  Receive Date: 20130128
  Receipt Date: 20141027
  Transmission Date: 20150529
  Serious: Yes (Hospitalization, Other)
  Sender: FDA-Public Use
  Company Number: JPI-P-029131

PATIENT
  Age: 64 Year
  Sex: Female

DRUGS (5)
  1. BACLOFEN. [Suspect]
     Active Substance: BACLOFEN
     Indication: PRODUCT USED FOR UNKNOWN INDICATION
  2. ALPRAZOLAM. [Suspect]
     Active Substance: ALPRAZOLAM
     Indication: PRODUCT USED FOR UNKNOWN INDICATION
  3. XYREM [Suspect]
     Active Substance: SODIUM OXYBATE
     Indication: RAPID EYE MOVEMENTS SLEEP ABNORMAL
     Dosage: 4.5 GM (2.25 GM,2 IN 1 D),ORAL
     Route: 048
     Dates: start: 20030701, end: 2003
  4. XYREM [Suspect]
     Active Substance: SODIUM OXYBATE
     Indication: SOMNOLENCE
     Dosage: 4.5 GM (2.25 GM,2 IN 1 D),ORAL
     Route: 048
     Dates: start: 20030701, end: 2003
  5. DIPHENHYDRAMINE [Suspect]
     Active Substance: DIPHENHYDRAMINE
     Indication: PRODUCT USED FOR UNKNOWN INDICATION
     Dosage: SINGLE

REACTIONS (21)
  - Drug withdrawal syndrome [None]
  - Musculoskeletal stiffness [None]
  - Pruritus [None]
  - Drug hypersensitivity [None]
  - Fear [None]
  - Toxic encephalopathy [None]
  - Weight increased [None]
  - Delirium [None]
  - Dyskinesia [None]
  - Tremor [None]
  - Adverse drug reaction [None]
  - Metabolic disorder [None]
  - Hypoxia [None]
  - Confusional state [None]
  - Pain [None]
  - Toxicity to various agents [None]
  - Off label use [None]
  - Vomiting [None]
  - Therapeutic response unexpected [None]
  - Stress [None]
  - Autoimmune disorder [None]

NARRATIVE: CASE EVENT DATE: 200308
